FAERS Safety Report 22065620 (Version 1)
Quarter: 2023Q1

REPORT INFORMATION
  Report Type: Spontaneous
  Country: US (occurrence: US)
  Receive Date: 20230306
  Receipt Date: 20230306
  Transmission Date: 20230417
  Serious: No
  Sender: FDA-Public Use
  Company Number: US-BAYER-2023A028269

PATIENT
  Sex: Female

DRUGS (1)
  1. CLARITIN LIQUI-GELS [Suspect]
     Active Substance: LORATADINE
     Indication: Nutritional supplementation
     Route: 048

REACTIONS (2)
  - Off label use [Unknown]
  - Tinnitus [Unknown]
